FAERS Safety Report 18933142 (Version 1)
Quarter: 2021Q1

REPORT INFORMATION
  Report Type: Spontaneous
  Country: US (occurrence: US)
  Receive Date: 20210224
  Receipt Date: 20210224
  Transmission Date: 20210420
  Serious: No
  Sender: FDA-Public Use
  Company Number: US-LANTHEUS-LMI-2020-00061

PATIENT
  Age: 18 Year
  Sex: Male

DRUGS (11)
  1. KETOPROFEN. [Concomitant]
     Active Substance: KETOPROFEN
     Indication: MASTOCYTOSIS
     Dosage: 2 MILLIGRAM, BID
     Route: 048
  2. PEPCID [Concomitant]
     Active Substance: FAMOTIDINE
     Indication: OESOPHAGITIS
     Dosage: 40 MILLIGRAM, BID
     Route: 048
  3. FLOVENT [Concomitant]
     Active Substance: FLUTICASONE PROPIONATE
     Indication: MASTOCYTOSIS
     Dosage: 2 PUFFS, BID
     Route: 055
  4. FERREX [Concomitant]
     Active Substance: FERRIC POLYSACCHARIDE COMPLEX
     Indication: MINERAL SUPPLEMENTATION
     Dosage: 150 MILLIGRAM
     Route: 048
  5. OMEPRAZOLE. [Concomitant]
     Active Substance: OMEPRAZOLE
     Indication: OESOPHAGITIS
     Dosage: 20 MILLIGRAM, BID
     Route: 048
  6. EPIPEN [Concomitant]
     Active Substance: EPINEPHRINE
     Indication: ANAPHYLACTIC REACTION
     Dosage: INJECTION PEN, PRN
     Route: 065
  7. VITAMIN D2 [Concomitant]
     Active Substance: ERGOCALCIFEROL
     Indication: VITAMIN SUPPLEMENTATION
     Dosage: UNK
     Route: 048
  8. ZYRTEC [Concomitant]
     Active Substance: CETIRIZINE HYDROCHLORIDE
     Indication: MASTOCYTOSIS
     Dosage: 10 MILLIGRAM, BID
     Route: 048
  9. ZOFRAN [Concomitant]
     Active Substance: ONDANSETRON HYDROCHLORIDE
     Indication: NAUSEA
     Dosage: UNK, PRN
     Route: 065
  10. DEFINITY [Suspect]
     Active Substance: PERFLUTREN
     Indication: ECHOCARDIOGRAM
     Dosage: UNK, (DILUTION DETAILS WITH NORMAL SALINE NOT REPORTED)
     Route: 040
     Dates: start: 20200124, end: 20200124
  11. ALLEGRA [Concomitant]
     Active Substance: FEXOFENADINE HYDROCHLORIDE
     Indication: MASTOCYTOSIS
     Dosage: 180 MILLIGRAM, QD
     Route: 048

REACTIONS (2)
  - Arthralgia [Recovered/Resolved]
  - Rash papular [Not Recovered/Not Resolved]

NARRATIVE: CASE EVENT DATE: 20200124
